FAERS Safety Report 10592457 (Version 1)
Quarter: 2014Q4

REPORT INFORMATION
  Report Type: Spontaneous
  Country: JP (occurrence: None)
  Receive Date: 20141117
  Receipt Date: 20141117
  Transmission Date: 20150529
  Serious: Yes (Hospitalization)
  Sender: FDA-Public Use
  Company Number: ABR_01861_2014

PATIENT
  Age: 33 Year
  Sex: Male

DRUGS (1)
  1. GLIADEL [Suspect]
     Active Substance: CARMUSTINE
     Indication: MALIGNANT GLIOMA
     Dosage: 8 DF, 1X  INTRACEREBRAL
     Dates: start: 20140425, end: 20140521

REACTIONS (1)
  - Implant site infection [None]

NARRATIVE: CASE EVENT DATE: 20140509
